FAERS Safety Report 24527584 (Version 1)
Quarter: 2024Q4

REPORT INFORMATION
  Report Type: Spontaneous
  Country: CN (occurrence: CN)
  Receive Date: 20241021
  Receipt Date: 20241021
  Transmission Date: 20250115
  Serious: Yes (Life-Threatening)
  Sender: SERVIER
  Company Number: None

PATIENT

DRUGS (3)
  1. TIBSOVO [Suspect]
     Active Substance: IVOSIDENIB
     Indication: Acute myeloid leukaemia
     Dosage: 0.5 G, QD
     Route: 048
     Dates: start: 20240920, end: 20240927
  2. SELINEXOR [Suspect]
     Active Substance: SELINEXOR
     Indication: Acute myeloid leukaemia
     Dosage: 40 MG, 2X A WEEK
     Route: 048
     Dates: start: 20240920, end: 20240927
  3. VENETOCLAX [Suspect]
     Active Substance: VENETOCLAX
     Indication: Acute myeloid leukaemia
     Dosage: 400 MG, QD
     Route: 048
     Dates: start: 20240920, end: 20240925

REACTIONS (1)
  - Drug-induced liver injury [Recovered/Resolved]

NARRATIVE: CASE EVENT DATE: 20241007
